FAERS Safety Report 9895806 (Version 1)
Quarter: 2014Q1

REPORT INFORMATION
  Report Type: Spontaneous
  Country: US (occurrence: US)
  Receive Date: 20140213
  Receipt Date: 20140213
  Transmission Date: 20141002
  Serious: No
  Sender: FDA-Public Use
  Company Number: US-BRISTOL-MYERS SQUIBB COMPANY-19543321

PATIENT
  Age: 57 Year
  Sex: Male
  Weight: 83.9 kg

DRUGS (5)
  1. ABATACEPT SUBQ INJECTION 125MG/ML [Suspect]
     Dosage: 1DF: 125MG/ML,PFS(4PACK)
     Route: 058
  2. ARAVA [Concomitant]
     Dosage: TABLET
  3. VITAMIN D3 [Concomitant]
     Dosage: 1DF:400 UNIT TABLET
  4. VITAMIN C [Concomitant]
     Dosage: CAPSULE CR
  5. FOLIC ACID [Concomitant]
     Dosage: CAPSULE

REACTIONS (3)
  - Oropharyngeal pain [Unknown]
  - Rhinorrhoea [Unknown]
  - Headache [Unknown]
